FAERS Safety Report 7690638-0 (Version None)
Quarter: 2011Q3

REPORT INFORMATION
  Report Type: 
  Country: None (occurrence: None)
  Receive Date: 20110818
  Receipt Date: 20110810
  Transmission Date: 20111222
  Serious: Yes (Other)
  Sender: FDA-Public Use
  Company Number: DE-ALEXION-A201101153

PATIENT

DRUGS (2)
  1. SOLIRIS [Suspect]
     Indication: HAEMOLYTIC URAEMIC SYNDROME
     Dosage: FIRST DOSE
     Route: 042
     Dates: start: 20110601, end: 20110601
  2. SOLIRIS [Suspect]
     Dosage: SECOND DOSE
     Route: 042
     Dates: start: 20110603, end: 20110603

REACTIONS (1)
  - TRANSAMINASES INCREASED [None]
